FAERS Safety Report 24377888 (Version 1)
Quarter: 2024Q3

REPORT INFORMATION
  Report Type: Spontaneous
  Country: GB (occurrence: GB)
  Receive Date: 20240930
  Receipt Date: 20240930
  Transmission Date: 20241017
  Serious: Yes (Other)
  Sender: AUROBINDO
  Company Number: GB-MHRA-MED-202409210723494060-MBLVY

PATIENT
  Age: 60 Year
  Sex: Female
  Weight: 6 kg

DRUGS (1)
  1. POLYETHYLENE GLYCOLS [Suspect]
     Active Substance: POLYETHYLENE GLYCOLS
     Indication: Adverse drug reaction
     Dosage: UNK
     Route: 065
     Dates: start: 20240920, end: 20240921

REACTIONS (1)
  - Eye swelling [Not Recovered/Not Resolved]

NARRATIVE: CASE EVENT DATE: 20240921
